FAERS Safety Report 9114158 (Version 2)
Quarter: 2014Q2

REPORT INFORMATION
  Report Type: Spontaneous
  Country: US (occurrence: US)
  Receive Date: 20130208
  Receipt Date: 20140402
  Transmission Date: 20141212
  Serious: No
  Sender: FDA-Public Use
  Company Number: US-009507513-1302USA000059

PATIENT
  Sex: Female

DRUGS (2)
  1. PUREGON PEN [Suspect]
     Indication: PRODUCT USED FOR UNKNOWN INDICATION
  2. FOLLISTIM AQ [Concomitant]

REACTIONS (1)
  - Device malfunction [Unknown]
